FAERS Safety Report 9457523 (Version 1)
Quarter: 2013Q3

REPORT INFORMATION
  Report Type: Spontaneous
  Country: FR (occurrence: None)
  Receive Date: 20130812
  Receipt Date: 20130812
  Transmission Date: 20140515
  Serious: Yes (Hospitalization)
  Sender: FDA-Public Use
  Company Number: AG-2012-1634

PATIENT
  Age: 81 Year
  Sex: Male
  Weight: 90 kg

DRUGS (13)
  1. CHLORAMBUCIL [Suspect]
     Indication: CHRONIC LYMPHOCYTIC LEUKAEMIA
     Dosage: DAY 1 AND 15 OR 28 OF EACH CYCLE
     Route: 048
  2. RITUXIMAB [Suspect]
     Dosage: DAY 1 AND DAY28 (CYCLE 1)
     Dates: start: 20120228
  3. PREVISCAN ( FLUINDIONE) [Concomitant]
  4. FUROSEMIDE (FUROSEMIDE) [Concomitant]
  5. SPIRONOLACTONE (SPIRONOLACTONE) [Concomitant]
  6. FORLAX (MACROGOL) [Concomitant]
  7. FUMAFER (FERROUS FUMARATE) [Concomitant]
  8. FORADIL (FORMOTEROL) [Concomitant]
  9. BUDESONIDE (BUDESONIDE) [Concomitant]
  10. ZOLINOX (ZOPICLONE) [Concomitant]
  11. NEORECORMON (ERYTHROPOIETIN) [Concomitant]
  12. BACITRACIN (BACITRACIN) [Concomitant]
  13. ZELITREX (VALACICLOVIR) [Concomitant]

REACTIONS (4)
  - Pneumonia [None]
  - Anaemia [None]
  - Fall [None]
  - Bronchitis [None]
